FAERS Safety Report 7332634-9 (Version None)
Quarter: 2011Q1

REPORT INFORMATION
  Report Type: 
  Country: None (occurrence: None)
  Receive Date: 20110304
  Receipt Date: 20110221
  Transmission Date: 20110831
  Serious: Yes (Other)
  Sender: FDA-Public Use
  Company Number: US-PERRIGO-11US001525

PATIENT
  Age: 91 Year
  Sex: Female

DRUGS (1)
  1. SODIUM PHOSPHATE ENEMA  002 [Suspect]
     Indication: PRODUCT USED FOR UNKNOWN INDICATION
     Dosage: UNK
     Route: 065

REACTIONS (4)
  - ACUTE PHOSPHATE NEPHROPATHY [None]
  - NAUSEA [None]
  - RENAL FAILURE [None]
  - ASTHENIA [None]
